FAERS Safety Report 10312961 (Version 1)
Quarter: 2014Q3

REPORT INFORMATION
  Report Type: Report from Study
  Country: FR (occurrence: None)
  Receive Date: 20140716
  Receipt Date: 20140716
  Transmission Date: 20150326
  Serious: Yes (Other)
  Sender: FDA-Public Use
  Company Number: AG-2014-002846

PATIENT
  Age: 78 Year
  Sex: Female

DRUGS (14)
  1. TAREG [Concomitant]
     Active Substance: VALSARTAN
  2. METHYLPREDNISOLONE [Concomitant]
     Active Substance: METHYLPREDNISOLONE
  3. KARDEGIC [Concomitant]
     Active Substance: ASPIRIN LYSINE
  4. MAGNE B6 [Concomitant]
     Active Substance: MAGNESIUM\PYRIDOXINE
  5. CHLORAMBUCIL [Suspect]
     Active Substance: CHLORAMBUCIL
     Indication: CHRONIC LYMPHOCYTIC LEUKAEMIA
     Dosage: C1D1 (UNKNOWN, 1 IN 1 D), ORAL
     Route: 048
     Dates: start: 20140306, end: 20140306
  6. POLARAMINE [Concomitant]
     Active Substance: DEXCHLORPHENIRAMINE MALEATE
  7. FASTURTEC [Concomitant]
     Active Substance: RASBURICASE
  8. OBINUTUZUMAB [Suspect]
     Active Substance: OBINUTUZUMAB
     Indication: CHRONIC LYMPHOCYTIC LEUKAEMIA
     Dosage: C1D1 (UNKNOWN, 1 IN  1 D), INTRAVENOUS (NOT OTHERWISE SPECIFIED)
     Route: 042
     Dates: start: 20140306, end: 20140306
  9. BACTRIM [Concomitant]
     Active Substance: SULFAMETHOXAZOLE\TRIMETHOPRIM
  10. KAYEXALATE [Concomitant]
     Active Substance: SODIUM POLYSTYRENE SULFONATE
  11. ZOPHREN [Concomitant]
     Active Substance: ONDANSETRON
  12. PERFALGAN [Concomitant]
     Active Substance: ACETAMINOPHEN
  13. ZELITREX [Concomitant]
     Active Substance: VALACYCLOVIR HYDROCHLORIDE
  14. NERISONE [Concomitant]
     Active Substance: DIFLUCORTOLONE VALERATE

REACTIONS (2)
  - Tumour lysis syndrome [None]
  - Blood lactate dehydrogenase increased [None]

NARRATIVE: CASE EVENT DATE: 20140307
